FAERS Safety Report 9485394 (Version 2)
Quarter: 2013Q3

REPORT INFORMATION
  Report Type: Spontaneous
  Country: US (occurrence: US)
  Receive Date: 20130829
  Receipt Date: 20130829
  Transmission Date: 20140515
  Serious: Yes (Hospitalization, Other)
  Sender: FDA-Public Use
  Company Number: US-AMGEN-USASP2012007149

PATIENT
  Age: 35 Year
  Sex: Female

DRUGS (2)
  1. ENBREL [Suspect]
     Indication: RHEUMATOID ARTHRITIS
     Dosage: 50 MG, QWK
     Route: 065
     Dates: start: 20100101, end: 201305
  2. ENBREL [Suspect]
     Indication: ANKYLOSING SPONDYLITIS

REACTIONS (11)
  - Cardiac flutter [Not Recovered/Not Resolved]
  - Kidney infection [Recovered/Resolved]
  - Pneumonia [Recovered/Resolved]
  - Chest pain [Not Recovered/Not Resolved]
  - Aphonia [Recovered/Resolved]
  - Lung infiltration [Recovered/Resolved]
  - Influenza like illness [Recovered/Resolved]
  - Migraine [Not Recovered/Not Resolved]
  - Cystitis [Recovered/Resolved]
  - Malaise [Not Recovered/Not Resolved]
  - Arthralgia [Not Recovered/Not Resolved]
